FAERS Safety Report 24726168 (Version 2)
Quarter: 2025Q1

REPORT INFORMATION
  Report Type: Spontaneous
  Country: SE (occurrence: SE)
  Receive Date: 20241212
  Receipt Date: 20250114
  Transmission Date: 20250409
  Serious: No
  Sender: ORGANON
  Company Number: SE-TEVA-VS-3262101

PATIENT
  Age: 54 Year
  Sex: Female

DRUGS (3)
  1. MONTELUKAST SODIUM [Suspect]
     Active Substance: MONTELUKAST SODIUM
     Indication: Product used for unknown indication
     Route: 065
  2. DESLORATADINE [Suspect]
     Active Substance: DESLORATADINE
     Indication: Mite allergy
     Dosage: ACTAVIS
     Route: 065
  3. BUDESONIDE\FORMOTEROL FUMARATE [Suspect]
     Active Substance: BUDESONIDE\FORMOTEROL FUMARATE
     Indication: Product used for unknown indication
     Route: 065

REACTIONS (5)
  - Stress [Recovered/Resolved]
  - Rales [Not Recovered/Not Resolved]
  - Hypertension [Recovered/Resolved]
  - Feeling abnormal [Unknown]
  - Nasopharyngitis [Unknown]

NARRATIVE: CASE EVENT DATE: 20241101
